FAERS Safety Report 4308504-7 (Version None)
Quarter: 2004Q1

REPORT INFORMATION
  Report Type: 
  Country: None (occurrence: None)
  Receive Date: 20040301
  Receipt Date: 20040220
  Transmission Date: 20041129
  Serious: Yes (Hospitalization)
  Sender: FDA-Public Use
  Company Number: PHRM2004FR00918

PATIENT
  Age: 50 Year
  Sex: Female

DRUGS (5)
  1. TEGRETOL [Suspect]
     Dosage: 200 MG, BID
     Route: 048
  2. PREVISCAN [Suspect]
     Route: 048
     Dates: start: 19990809, end: 19990815
  3. FLUVOXAMINE MALEATE [Suspect]
     Dosage: 100 MG, QD
     Route: 048
  4. IMOVANE [Concomitant]
     Route: 048
  5. TRANXENE [Concomitant]
     Dosage: 10 MG/DAY
     Route: 048

REACTIONS (2)
  - DRUG INTERACTION [None]
  - PROTHROMBIN LEVEL DECREASED [None]
